FAERS Safety Report 5867296-0 (Version None)
Quarter: 2008Q3

REPORT INFORMATION
  Report Type: 
  Country: None (occurrence: None)
  Receive Date: 20080829
  Receipt Date: 20080829
  Transmission Date: 20090109
  Serious: Yes (Hospitalization)
  Sender: FDA-Public Use
  Company Number: None

PATIENT
  Sex: Male
  Weight: 66.45 kg

DRUGS (1)
  1. CISPLATIN [Suspect]
     Dosage: 178 MG
     Dates: end: 20080811

REACTIONS (7)
  - CHILLS [None]
  - CLOSTRIDIUM DIFFICILE COLITIS [None]
  - DEHYDRATION [None]
  - DIZZINESS [None]
  - HAEMATOCHEZIA [None]
  - PALPITATIONS [None]
  - RENAL FAILURE ACUTE [None]
